FAERS Safety Report 5140758-X (Version None)
Quarter: 2006Q4

REPORT INFORMATION
  Report Type: 
  Country: None (occurrence: None)
  Receive Date: 20061025
  Receipt Date: 20061011
  Transmission Date: 20070319
  Serious: Yes (Hospitalization)
  Sender: FDA-Public Use
  Company Number: 2006BL006002

PATIENT
  Age: 51 Year
  Sex: Female

DRUGS (2)
  1. PREDNISOLONE SODIUM PHOSPHATE [Suspect]
     Indication: LUNG TRANSPLANT
     Dosage: ORAL
     Route: 048
  2. CYCLOSPORINE [Suspect]
     Indication: LUNG TRANSPLANT

REACTIONS (4)
  - ASPERGILLOSIS [None]
  - SCAR [None]
  - SPUTUM CULTURE POSITIVE [None]
  - TRACHEOBRONCHITIS [None]
